FAERS Safety Report 23084479 (Version 2)
Quarter: 2023Q4

REPORT INFORMATION
  Report Type: Spontaneous
  Country: SK (occurrence: SK)
  Receive Date: 20231019
  Receipt Date: 20231211
  Transmission Date: 20240110
  Serious: Yes (Hospitalization, Other)
  Sender: FDA-Public Use
  Company Number: SK-TEVA-2023-SK-2934041

PATIENT
  Age: 80 Year
  Sex: Male

DRUGS (1)
  1. PEMETREXED [Suspect]
     Active Substance: PEMETREXED
     Indication: Non-small cell lung cancer
     Route: 065

REACTIONS (2)
  - Renal failure [Recovered/Resolved with Sequelae]
  - Renal impairment [Recovering/Resolving]

NARRATIVE: CASE EVENT DATE: 20230828
